FAERS Safety Report 4297075-X (Version None)
Quarter: 2004Q1

REPORT INFORMATION
  Report Type: 
  Country: None (occurrence: None)
  Receive Date: 20040126
  Receipt Date: 20030902
  Transmission Date: 20041129
  Serious: No
  Sender: FDA-Public Use
  Company Number: USA030946022

PATIENT
  Age: 7 Year
  Sex: Male

DRUGS (1)
  1. STRATTERA [Suspect]
     Indication: ATTENTION DEFICIT/HYPERACTIVITY DISORDER
     Dosage: 25 MG/DAY
     Dates: start: 20030301

REACTIONS (5)
  - COUGH [None]
  - MULTIPLE ALLERGIES [None]
  - NASOPHARYNGITIS [None]
  - PRODUCTIVE COUGH [None]
  - SINUSITIS [None]
